FAERS Safety Report 14967845 (Version 6)
Quarter: 2021Q4

REPORT INFORMATION
  Report Type: Spontaneous
  Country: US (occurrence: US)
  Receive Date: 20180604
  Receipt Date: 20211213
  Transmission Date: 20220303
  Serious: Yes (Hospitalization, Other)
  Sender: FDA-Public Use
  Company Number: US-PFIZER INC-2018223318

PATIENT
  Age: 71 Year
  Sex: Female
  Weight: 97.98 kg

DRUGS (7)
  1. LYRICA [Suspect]
     Active Substance: PREGABALIN
     Indication: Electric shock sensation
     Dosage: 200 MG, THRICE DAILY
     Route: 048
     Dates: start: 2012
  2. LYRICA [Suspect]
     Active Substance: PREGABALIN
     Indication: Fibromyalgia
     Dosage: 200 MG, THRICE DAILY
     Route: 048
     Dates: end: 201805
  3. LYRICA [Suspect]
     Active Substance: PREGABALIN
     Dosage: 200 MG, THRICE DAILY
     Route: 048
  4. LOSARTAN [Concomitant]
     Active Substance: LOSARTAN
     Indication: Blood pressure abnormal
     Dosage: 1 DF, DAILY
     Route: 048
  5. TERAZOSIN [Concomitant]
     Active Substance: TERAZOSIN HYDROCHLORIDE
     Indication: Blood pressure abnormal
     Dosage: 2 MG, ONCE DAILY (AT BEDTIME)
     Route: 048
  6. VERAPAMIL [Concomitant]
     Active Substance: VERAPAMIL HYDROCHLORIDE
     Indication: Heart rate irregular
     Dosage: 240 MG, DAILY
     Route: 048
  7. SYMBICORT [Concomitant]
     Active Substance: BUDESONIDE\FORMOTEROL FUMARATE DIHYDRATE
     Indication: Asthma
     Dosage: UNK, TWICE DAILY (2 PUFFS, TWICE DAILY)
     Route: 055

REACTIONS (6)
  - Neck pain [Unknown]
  - Drug withdrawal syndrome [Recovered/Resolved]
  - Rotator cuff syndrome [Unknown]
  - Upper limb fracture [Unknown]
  - Myalgia [Recovered/Resolved]
  - Muscle spasms [Recovered/Resolved]

NARRATIVE: CASE EVENT DATE: 20180101
